FAERS Safety Report 6730443-2 (Version None)
Quarter: 2010Q2

REPORT INFORMATION
  Report Type: 
  Country: None (occurrence: None)
  Receive Date: 20100518
  Receipt Date: 20100514
  Transmission Date: 20101027
  Serious: Yes (Hospitalization)
  Sender: FDA-Public Use
  Company Number: B0652895A

PATIENT
  Sex: Female

DRUGS (2)
  1. CLAMOXYL [Suspect]
     Indication: BRONCHITIS
     Dosage: 1UNIT SINGLE DOSE
     Route: 048
     Dates: start: 20090923, end: 20090923
  2. VENTOLIN [Concomitant]
     Indication: ASTHMA
     Route: 065
     Dates: start: 19980101

REACTIONS (6)
  - ANAPHYLACTIC REACTION [None]
  - FACE OEDEMA [None]
  - PRURITUS [None]
  - RALES [None]
  - RASH ERYTHEMATOUS [None]
  - SUFFOCATION FEELING [None]
